FAERS Safety Report 20020649 (Version 2)
Quarter: 2021Q4

REPORT INFORMATION
  Report Type: Spontaneous
  Country: DE (occurrence: DE)
  Receive Date: 20211101
  Receipt Date: 20211229
  Transmission Date: 20220304
  Serious: Yes (Other)
  Sender: FDA-Public Use
  Company Number: None

PATIENT
  Age: 69 Year
  Sex: Female
  Weight: 67 kg

DRUGS (2)
  1. CLINDAMYCIN HYDROCHLORIDE [Suspect]
     Active Substance: CLINDAMYCIN HYDROCHLORIDE
     Indication: Apicectomy
     Dosage: 1200 MG, QD (2 X 2 300 MG UBER 2 TAGE, DANN ERSTE ALLERGISCHE REAKTION)
     Route: 048
     Dates: start: 20210928, end: 20210930
  2. CLINDAMYCIN HYDROCHLORIDE [Suspect]
     Active Substance: CLINDAMYCIN HYDROCHLORIDE
     Dosage: 600 MG, Q8H (3 X 2 TABL. UBER 2 TAGE, DANN ERSTE ALLERGISCHE REAKTION)
     Route: 048
     Dates: start: 20210928, end: 20210929

REACTIONS (14)
  - Angina pectoris [Recovered/Resolved]
  - Somnolence [Recovering/Resolving]
  - Asthenia [Recovered/Resolved]
  - Dysphonia [Recovering/Resolving]
  - Oral disorder [Recovering/Resolving]
  - Pyrexia [Recovered/Resolved]
  - Abdominal pain [Recovered/Resolved]
  - Headache [Recovered/Resolved]
  - Hypersensitivity [Recovered/Resolved]
  - Diarrhoea [Recovered/Resolved]
  - Nausea [Recovered/Resolved]
  - Swelling face [Recovered/Resolved]
  - Erythema [Recovered/Resolved]
  - Palpitations [Recovered/Resolved]

NARRATIVE: CASE EVENT DATE: 20210930
